FAERS Safety Report 8462113-7 (Version None)
Quarter: 2012Q2

REPORT INFORMATION
  Report Type: 
  Country: None (occurrence: None)
  Receive Date: 20120625
  Receipt Date: 20120614
  Transmission Date: 20120825
  Serious: Yes (Hospitalization)
  Sender: FDA-Public Use
  Company Number: FR-PFIZER INC-2012148021

PATIENT
  Age: 98 Year
  Sex: Female

DRUGS (7)
  1. ATHYMIL [Suspect]
     Dosage: UNK
     Dates: end: 20120501
  2. NEXIUM [Suspect]
     Dosage: UNK
     Dates: end: 20120501
  3. ATARAX [Suspect]
     Dosage: UNK
     Dates: end: 20120501
  4. SINEMET [Concomitant]
     Indication: PARKINSON'S DISEASE
     Dosage: UNK
  5. ALDACTONE [Suspect]
     Dosage: UNK
     Dates: end: 20120501
  6. DIGOXIN [Suspect]
     Dosage: UNK
     Dates: end: 20120501
  7. BUMETANIDE [Suspect]
     Dosage: UNK
     Dates: end: 20120501

REACTIONS (1)
  - PANCREATITIS ACUTE [None]
